FAERS Safety Report 15823293 (Version 6)
Quarter: 2019Q3

REPORT INFORMATION
  Report Type: Report from Study
  Country: US (occurrence: US)
  Receive Date: 20190114
  Receipt Date: 20190702
  Transmission Date: 20191004
  Serious: Yes (Other)
  Sender: FDA-Public Use
  Company Number: US-PFIZER INC-2018477620

PATIENT
  Age: 60 Year
  Sex: Female

DRUGS (5)
  1. IBRANCE [Suspect]
     Active Substance: PALBOCICLIB
     Dosage: 75 MG, CYCLIC (75 MG DAILY FOR 21 DAYS AND OFF 7 DAYS WITH DAILY LETROZOLE)
     Route: 048
     Dates: start: 20190211, end: 20190503
  2. IBRANCE [Suspect]
     Active Substance: PALBOCICLIB
     Indication: BREAST CANCER FEMALE
     Dosage: 125 MG, CYCLIC (DAILY FOR 21 DAYS AND OFF 7 DAYS)
     Route: 048
     Dates: start: 20181028, end: 2018
  3. LETROZOLE. [Concomitant]
     Active Substance: LETROZOLE
     Dosage: UNK UNK, DAILY
     Dates: start: 20190211
  4. IBRANCE [Suspect]
     Active Substance: PALBOCICLIB
     Dosage: 75 MG, CYCLIC (DAILY FOR 14 DAYS AND OFF 7 DAYS WITH DAILY LETROZOLE)
     Route: 048
     Dates: start: 2019
  5. IBRANCE [Suspect]
     Active Substance: PALBOCICLIB
     Dosage: 100 MG, CYCLIC (DAILY, FOR 21 DAYS ON AND 7 DAYS OFF)
     Route: 048
     Dates: start: 20181207

REACTIONS (8)
  - White blood cell count decreased [Not Recovered/Not Resolved]
  - Product dose omission [Unknown]
  - Fatigue [Unknown]
  - Paraesthesia [Recovering/Resolving]
  - Central nervous system lesion [Unknown]
  - Bone marrow failure [Unknown]
  - Stomatitis [Recovered/Resolved]
  - Pain [Unknown]

NARRATIVE: CASE EVENT DATE: 2018
